FAERS Safety Report 12791002 (Version 2)
Quarter: 2016Q4

REPORT INFORMATION
  Report Type: Report from Study
  Country: CA (occurrence: CA)
  Receive Date: 20160929
  Receipt Date: 20161012
  Transmission Date: 20170207
  Serious: Yes (Hospitalization, Other)
  Sender: FDA-Public Use
  Company Number: CA-BRISTOL-MYERS SQUIBB COMPANY-BMS-2016-078192

PATIENT
  Age: 57 Year
  Sex: Female

DRUGS (1)
  1. ABATACEPT [Suspect]
     Active Substance: ABATACEPT
     Indication: RHEUMATOID ARTHRITIS
     Dosage: 125 MG, QWK
     Route: 058
     Dates: start: 201406, end: 201503

REACTIONS (4)
  - Oophorectomy bilateral [Unknown]
  - Surgery [Unknown]
  - Endometrial adenocarcinoma [Recovering/Resolving]
  - Hysterectomy [Unknown]

NARRATIVE: CASE EVENT DATE: 201501
